FAERS Safety Report 4973419-8 (Version None)
Quarter: 2006Q2

REPORT INFORMATION
  Report Type: 
  Country: None (occurrence: None)
  Receive Date: 20060413
  Receipt Date: 20060413
  Transmission Date: 20061013
  Serious: Yes (Life-Threatening, Hospitalization)
  Sender: FDA-Public Use
  Company Number: None

PATIENT
  Age: 68 Year
  Sex: Male
  Weight: 108.9 kg

DRUGS (13)
  1. LISINOPRIL [Suspect]
  2. GLYBURIDE AND METFORMIN HCL [Concomitant]
  3. FELODIPINE [Concomitant]
  4. HYDROCHLOROTHIAZIDE [Concomitant]
  5. . [Concomitant]
  6. HUMULIN R [Concomitant]
  7. . [Concomitant]
  8. . [Concomitant]
  9. . [Concomitant]
  10. ATENOLOL [Concomitant]
  11. HUMULIN R [Concomitant]
  12. METHYLPREDNISOLONE (SOLU-MEDROL) INJ, SOLN [Concomitant]
  13. EPINEPHRINE INJ, SOLN [Concomitant]

REACTIONS (1)
  - ANGIONEUROTIC OEDEMA [None]
